FAERS Safety Report 6082794-5 (Version None)
Quarter: 2009Q1

REPORT INFORMATION
  Report Type: 
  Country: None (occurrence: None)
  Receive Date: 20090218
  Receipt Date: 20090209
  Transmission Date: 20090719
  Serious: Yes (Other)
  Sender: FDA-Public Use
  Company Number: PT-JNJFOC-20090106825

PATIENT
  Age: 14 Year
  Sex: Female

DRUGS (2)
  1. REMICADE [Suspect]
     Indication: CROHN'S DISEASE
     Dosage: INFUSIONS FOR 1 YEAR
     Route: 042
  2. AZATHIOPRINE [Concomitant]
     Indication: CROHN'S DISEASE

REACTIONS (1)
  - LUPUS-LIKE SYNDROME [None]
